FAERS Safety Report 6216118-7 (Version None)
Quarter: 2009Q2

REPORT INFORMATION
  Report Type: 
  Country: None (occurrence: None)
  Receive Date: 20090605
  Receipt Date: 20090528
  Transmission Date: 20091009
  Serious: Yes (Hospitalization)
  Sender: FDA-Public Use
  Company Number: ZA-AVENTIS-200915554GDDC

PATIENT
  Age: 11 Year
  Sex: Female

DRUGS (2)
  1. LANTUS [Suspect]
     Route: 058
     Dates: start: 20080629
  2. APIDRA [Suspect]
     Dosage: FREQUENCY: BEFORE MEALS
     Route: 058
     Dates: start: 20080629

REACTIONS (1)
  - DIABETIC KETOACIDOSIS [None]
